FAERS Safety Report 8006913-6 (Version None)
Quarter: 2011Q4

REPORT INFORMATION
  Report Type: 
  Country: None (occurrence: None)
  Receive Date: 20111227
  Receipt Date: 20111216
  Transmission Date: 20120403
  Serious: Yes (Hospitalization, Other)
  Sender: FDA-Public Use
  Company Number: US-BAYER-2010-009254

PATIENT
  Age: 25 Year
  Sex: Female
  Weight: 72.562 kg

DRUGS (7)
  1. ZYRTEC [Concomitant]
     Indication: RHINITIS ALLERGIC
  2. ACETAMINOPHEN [Concomitant]
     Dosage: UNK UNK, PRN
  3. ALLEGRA [Concomitant]
     Indication: SEASONAL ALLERGY
     Dosage: UNK
     Route: 048
  4. LEXAPRO [Concomitant]
     Indication: DEPRESSION
     Dosage: UNK
  5. MAGNESIUM HYDROXIDE TAB [Concomitant]
     Dosage: UNK UNK, PRN
  6. YAZ [Suspect]
     Indication: CONTRACEPTION
     Dosage: UNK
     Route: 048
     Dates: start: 20050101, end: 20070101
  7. LEXAPRO [Concomitant]
     Indication: ANXIETY

REACTIONS (8)
  - CHOLECYSTITIS CHRONIC [None]
  - PAIN [None]
  - GALLBLADDER NON-FUNCTIONING [None]
  - INJURY [None]
  - BILIARY COLIC [None]
  - NAUSEA [None]
  - BILIARY DYSKINESIA [None]
  - DIZZINESS [None]
